FAERS Safety Report 15664649 (Version 1)
Quarter: 2018Q4

REPORT INFORMATION
  Report Type: Other
  Country: US (occurrence: US)
  Receive Date: 20181128
  Receipt Date: 20181128
  Transmission Date: 20190205
  Serious: No
  Sender: FDA-Public Use
  Company Number: US-AMNEAL PHARMACEUTICALS-2018AMN00811

PATIENT
  Age: 10 Year
  Sex: Male
  Weight: 32.65 kg

DRUGS (5)
  1. METHYLPHENIDATE HYDROCHLORIDE. [Suspect]
     Active Substance: METHYLPHENIDATE HYDROCHLORIDE
     Indication: ATTENTION DEFICIT/HYPERACTIVITY DISORDER
     Dosage: 18 MG ON WEEKDAYS, ONE TABLET EVERY MORNING
     Route: 048
     Dates: start: 20180916, end: 20181015
  2. GUANFACINE 2 MG [Concomitant]
     Indication: PRODUCT USED FOR UNKNOWN INDICATION
  3. CYPROHEPTADINE. [Concomitant]
     Active Substance: CYPROHEPTADINE
     Indication: PRODUCT USED FOR UNKNOWN INDICATION
  4. METHYLPHENIDATE HYDROCHLORIDE. [Suspect]
     Active Substance: METHYLPHENIDATE HYDROCHLORIDE
     Dosage: 27 MG  ON WEEKDAY, ONE TABLET EVERY MORNING
     Route: 048
     Dates: start: 20180916, end: 20181015
  5. METHYLPHENIDATE HYDROCHLORIDE. [Suspect]
     Active Substance: METHYLPHENIDATE HYDROCHLORIDE
     Dosage: 36 MG ON WEEKENDS, ONE TABLET EVERY MORNING
     Route: 048
     Dates: start: 20180916, end: 20181015

REACTIONS (4)
  - Disturbance in attention [Recovered/Resolved]
  - Speech disorder [Recovered/Resolved]
  - Aggression [Recovered/Resolved]
  - Dysgraphia [Recovered/Resolved]
